FAERS Safety Report 8976943 (Version 2)
Quarter: 2013Q1

REPORT INFORMATION
  Report Type: Report from Study
  Country: US (occurrence: US)
  Receive Date: 20121220
  Receipt Date: 20130103
  Transmission Date: 20140127
  Serious: Yes (Hospitalization)
  Sender: FDA-Public Use
  Company Number: US-ACTELION-A-US2012-76408

PATIENT
  Age: 77 Year
  Sex: Female

DRUGS (2)
  1. TRACLEER [Suspect]
     Indication: PULMONARY ARTERIAL HYPERTENSION
     Dosage: 125 MG, BID
     Route: 048
     Dates: start: 200612
  2. REVATIO [Concomitant]
     Dosage: UNK
     Dates: start: 2005

REACTIONS (2)
  - Pulmonary thrombosis [Not Recovered/Not Resolved]
  - Asthenia [Not Recovered/Not Resolved]
